FAERS Safety Report 9101754 (Version 1)
Quarter: 2013Q1

REPORT INFORMATION
  Report Type: Spontaneous
  Country: FR (occurrence: FR)
  Receive Date: 20130218
  Receipt Date: 20130218
  Transmission Date: 20140127
  Serious: Yes (Other)
  Sender: FDA-Public Use
  Company Number: FR-JNJFOC-20130204078

PATIENT
  Age: 79 Year
  Sex: Male

DRUGS (5)
  1. XARELTO [Suspect]
     Indication: EMBOLISM VENOUS
     Route: 065
     Dates: start: 20130202
  2. XARELTO [Suspect]
     Indication: DEEP VEIN THROMBOSIS
     Route: 065
     Dates: start: 20130202
  3. PLAVIX [Interacting]
     Indication: PRODUCT USED FOR UNKNOWN INDICATION
     Route: 065
  4. ARIXTRA [Concomitant]
     Indication: DEEP VEIN THROMBOSIS
     Route: 065
  5. ARIXTRA [Concomitant]
     Indication: PULMONARY EMBOLISM
     Route: 065

REACTIONS (2)
  - Purpura [Recovered/Resolved]
  - Drug interaction [Unknown]
